FAERS Safety Report 23710500 (Version 1)
Quarter: 2024Q2

REPORT INFORMATION
  Report Type: Spontaneous
  Country: FR (occurrence: FR)
  Receive Date: 20240405
  Receipt Date: 20240405
  Transmission Date: 20240716
  Serious: Yes (Hospitalization)
  Sender: FDA-Public Use
  Company Number: FR-SUN PHARMACEUTICAL INDUSTRIES LTD-2024RR-440903

PATIENT
  Age: 76 Year
  Sex: Female
  Weight: 56.6 kg

DRUGS (5)
  1. SERTRALINE [Suspect]
     Active Substance: SERTRALINE HYDROCHLORIDE
     Indication: Mixed anxiety and depressive disorder
     Dosage: 25 MG/DAY
     Route: 048
     Dates: start: 20231021, end: 20231121
  2. SERTRALINE [Suspect]
     Active Substance: SERTRALINE HYDROCHLORIDE
     Dosage: 50 MG/DAY
     Route: 048
     Dates: start: 20231121, end: 20231123
  3. OXAZEPAM [Concomitant]
     Active Substance: OXAZEPAM
     Indication: Mixed anxiety and depressive disorder
     Dosage: 5 MG-0-5 MG + 5 MG AU COUCHER, SI BESOIN
     Route: 048
     Dates: start: 20231021
  4. OXAZEPAM [Concomitant]
     Active Substance: OXAZEPAM
     Dosage: 10 MG, 3/JOUR, SI BESOIN.
     Route: 048
     Dates: end: 20231021
  5. RISPERIDONE [Concomitant]
     Active Substance: RISPERIDONE
     Indication: Dementia Alzheimer^s type
     Dosage: 2 MG/DAY
     Route: 048

REACTIONS (1)
  - Bronchospasm [Recovered/Resolved]

NARRATIVE: CASE EVENT DATE: 20231115
